FAERS Safety Report 4831144-8 (Version None)
Quarter: 2005Q4

REPORT INFORMATION
  Report Type: 
  Country: None (occurrence: None)
  Receive Date: 20051114
  Receipt Date: 20051102
  Transmission Date: 20060501
  Serious: Yes (Other)
  Sender: FDA-Public Use
  Company Number: 2005-11-0093

PATIENT
  Sex: Female

DRUGS (1)
  1. ELOCON [Suspect]
     Dosage: TOP-DERM
     Route: 061

REACTIONS (2)
  - ACCIDENTAL EXPOSURE [None]
  - CUSHING'S SYNDROME [None]
